FAERS Safety Report 7801619-8 (Version None)
Quarter: 2011Q4

REPORT INFORMATION
  Report Type: 
  Country: None (occurrence: None)
  Receive Date: 20111007
  Receipt Date: 20110927
  Transmission Date: 20120403
  Serious: Yes (Other)
  Sender: FDA-Public Use
  Company Number: DE-ELI_LILLY_AND_COMPANY-DE201109007377

PATIENT
  Sex: Female

DRUGS (10)
  1. ATROVENT [Concomitant]
     Indication: LUNG DISORDER
     Route: 055
  2. MESTINON [Concomitant]
  3. VITAMIN D [Concomitant]
  4. FORTEO [Suspect]
     Indication: OSTEOPOROSIS
     Dosage: UNK, QD
     Route: 058
     Dates: start: 20100702, end: 20110531
  5. GASTROZEPIN [Concomitant]
  6. IBUPROFEN [Concomitant]
     Dosage: UNK, PRN
  7. SALBUHEXAL [Concomitant]
     Indication: LUNG DISORDER
     Route: 055
  8. CALCIUM CARBONATE [Concomitant]
  9. PREDNISOLONE [Concomitant]
  10. LACTOSE [Concomitant]

REACTIONS (1)
  - EYE OPERATION [None]
